FAERS Safety Report 11611307 (Version 1)
Quarter: 2015Q4

REPORT INFORMATION
  Report Type: Spontaneous
  Country: US (occurrence: US)
  Receive Date: 20151008
  Receipt Date: 20151008
  Transmission Date: 20160304
  Serious: No
  Sender: FDA-Public Use
  Company Number: US-BAYER-2015-438697

PATIENT
  Age: 75 Year
  Sex: Female
  Weight: 55.78 kg

DRUGS (3)
  1. LEVOTHYROXINE. [Concomitant]
     Active Substance: LEVOTHYROXINE
     Dosage: UNK
  2. EVISTA [RALOXIFENE HYDROCHLORIDE] [Concomitant]
  3. MIRALAX [Suspect]
     Active Substance: POLYETHYLENE GLYCOL 3350
     Dosage: 7 DF, ONCE WITH GATORADE
     Route: 048
     Dates: start: 20151004, end: 20151004

REACTIONS (1)
  - Product use issue [None]

NARRATIVE: CASE EVENT DATE: 20151004
